FAERS Safety Report 5272696-6 (Version None)
Quarter: 2007Q1

REPORT INFORMATION
  Report Type: 
  Country: None (occurrence: None)
  Receive Date: 20070322
  Receipt Date: 20070307
  Transmission Date: 20070707
  Serious: Yes (Hospitalization)
  Sender: FDA-Public Use
  Company Number: US-AMGEN-US211050

PATIENT
  Sex: Male
  Weight: 67.2 kg

DRUGS (3)
  1. VECTIBIX [Suspect]
     Indication: COLORECTAL CANCER
     Route: 042
     Dates: start: 20061101, end: 20070117
  2. ERBITUX [Suspect]
     Route: 065
  3. HYDROCODONE [Concomitant]
     Route: 065

REACTIONS (3)
  - BLOOD MAGNESIUM DECREASED [None]
  - HYPERKALAEMIA [None]
  - RENAL FAILURE ACUTE [None]
